FAERS Safety Report 6021650-5 (Version None)
Quarter: 2008Q4

REPORT INFORMATION
  Report Type: 
  Country: None (occurrence: None)
  Receive Date: 20081229
  Receipt Date: 20081218
  Transmission Date: 20090506
  Serious: Yes (Death)
  Sender: FDA-Public Use
  Company Number: KR-PFIZER INC-2008157179

PATIENT

DRUGS (15)
  1. BLINDED *PLACEBO [Suspect]
     Indication: COLORECTAL CANCER
     Dosage: 37.5 MG, 4 WEEKS TREATMENT
     Route: 048
     Dates: start: 20080605, end: 20081203
  2. BLINDED SUNITINIB MALATE [Suspect]
     Indication: COLORECTAL CANCER
     Dosage: 37.5 MG, 4 WEEKS TREATMENT
     Route: 048
     Dates: start: 20080605, end: 20081203
  3. IRINOTECAN HCL [Suspect]
     Indication: COLORECTAL CANCER
     Dosage: FREQUENCY: EVERY 2 WEEKS;
     Route: 042
     Dates: start: 20080605, end: 20081204
  4. FLUOROURACIL [Suspect]
     Indication: COLORECTAL CANCER
     Dosage: 410 MG: EVERY 2 WEEKS;
     Route: 042
     Dates: start: 20080605, end: 20081206
  5. FLUOROURACIL [Suspect]
     Dosage: 2458 MG, EVERY 2 WEEKS
     Route: 042
     Dates: start: 20080605, end: 20081206
  6. LEUCOVORIN CALCIUM [Suspect]
     Indication: COLORECTAL CANCER
     Dosage: 640 MG: EVERY 2 WEEKS;
     Route: 042
     Dates: start: 20080605, end: 20081204
  7. LOPERAMIDE [Concomitant]
     Indication: DIARRHOEA
     Dosage: 4 MG, 3X/DAY
     Dates: start: 20081204
  8. OXYCODONE HYDROCHLORIDE [Concomitant]
     Indication: CANCER PAIN
     Dosage: 5 MG, 1X/DAY
     Dates: start: 20080524
  9. ALUMINIUM MAGNESIUM SILICATE [Concomitant]
     Indication: DIARRHOEA
     Dosage: 3 G, 3X/DAY
     Dates: start: 20081204
  10. ALL OTHER THERAPEUTIC PRODUCTS [Concomitant]
     Indication: ANOREXIA
     Dosage: 400 MG, 2X/DAY
     Dates: start: 20080605
  11. FLUCONAZOLE [Concomitant]
     Indication: OROPHARYNGEAL PAIN
     Dosage: 100 MG, 1X/DAY
     Dates: start: 20081204, end: 20081210
  12. NYSTATIN [Concomitant]
     Indication: OROPHARYNGEAL PAIN
     Dosage: 4 ML, 1X/DAY
     Dates: start: 20081204
  13. ONDANSETRON [Concomitant]
     Indication: NAUSEA
     Dosage: 8 MG, UNK
     Dates: start: 20081204, end: 20081204
  14. DEXAMETHASONE [Concomitant]
     Dosage: 10 MG, 1X/DAY
     Dates: start: 20081204, end: 20081204
  15. ATROPINE [Concomitant]
     Dosage: 0.25 MG, 1X/DAY
     Dates: start: 20081204, end: 20081204

REACTIONS (1)
  - DEATH [None]
